FAERS Safety Report 11318069 (Version 1)
Quarter: 2015Q3

REPORT INFORMATION
  Report Type: Spontaneous
  Country: US (occurrence: US)
  Receive Date: 20150728
  Receipt Date: 20150728
  Transmission Date: 20151125
  Serious: Yes (Other)
  Sender: FDA-Public Use
  Company Number: US-PERRIGO-15US007482

PATIENT
  Age: 20 Year
  Sex: Male
  Weight: 49.89 kg

DRUGS (7)
  1. DIPHENHYDRAMINE HYDROCHLORIDE 25 MG 479 [Suspect]
     Active Substance: DIPHENHYDRAMINE HYDROCHLORIDE
     Indication: PERENNIAL ALLERGY
     Dosage: 25 MG, PRN
     Route: 048
     Dates: start: 2005, end: 201506
  2. ALCOHOL. [Concomitant]
     Active Substance: ALCOHOL
     Indication: PRODUCT USED FOR UNKNOWN INDICATION
     Dosage: 2 DRINKS 30 MINUTES TO 1 HOUR PRIOR TO DIPHENHYDRAMINE
     Route: 048
     Dates: start: 20150717
  3. ADDERALL [Concomitant]
     Active Substance: AMPHETAMINE ASPARTATE\AMPHETAMINE SULFATE\DEXTROAMPHETAMINE SACCHARATE\DEXTROAMPHETAMINE SULFATE
     Indication: ATTENTION DEFICIT/HYPERACTIVITY DISORDER
     Dosage: UNK
     Route: 065
     Dates: start: 2003
  4. VALTREX [Concomitant]
     Active Substance: VALACYCLOVIR HYDROCHLORIDE
     Indication: HERPES SIMPLEX
     Dosage: UNK
     Route: 065
     Dates: start: 201506
  5. DIPHENHYDRAMINE HYDROCHLORIDE 25 MG 479 [Suspect]
     Active Substance: DIPHENHYDRAMINE HYDROCHLORIDE
     Indication: INSOMNIA
     Dosage: 50 MG, SINGLE
     Route: 048
     Dates: start: 20150717, end: 20150717
  6. IBUPROFEN. [Concomitant]
     Active Substance: IBUPROFEN
     Indication: PAIN
     Dosage: 200 MG, UNK
     Route: 065
     Dates: start: 2000
  7. DIPHENHYDRAMINE HYDROCHLORIDE 25 MG 479 [Suspect]
     Active Substance: DIPHENHYDRAMINE HYDROCHLORIDE
     Indication: OROPHARYNGEAL PAIN

REACTIONS (8)
  - Urinary incontinence [Recovered/Resolved]
  - Off label use [Recovered/Resolved]
  - Memory impairment [Recovered/Resolved]
  - Restlessness [Recovered/Resolved]
  - Abnormal behaviour [Recovered/Resolved]
  - Loss of consciousness [Recovered/Resolved]
  - Aggression [Recovered/Resolved]
  - Expired product administered [Recovered/Resolved]

NARRATIVE: CASE EVENT DATE: 2005
